FAERS Safety Report 18622946 (Version 1)
Quarter: 2020Q4

REPORT INFORMATION
  Report Type: Spontaneous
  Country: US (occurrence: US)
  Receive Date: 20201216
  Receipt Date: 20201216
  Transmission Date: 20210114
  Serious: Yes (Other)
  Sender: FDA-Public Use
  Company Number: US-GLAXOSMITHKLINE-US2020GSK249109

PATIENT
  Sex: Male

DRUGS (10)
  1. RANITIDINE CAPSULE [Suspect]
     Active Substance: RANITIDINE
     Dosage: UNK, QD
     Route: 065
     Dates: start: 200207, end: 201909
  2. ZANTAC [Suspect]
     Active Substance: RANITIDINE HYDROCHLORIDE
     Dosage: 150 MG OVER THE COUNTER
     Route: 065
     Dates: start: 200004, end: 201909
  3. RANITIDINE. [Suspect]
     Active Substance: RANITIDINE
     Dosage: 75 MG OVER THE COUNTER
     Route: 065
     Dates: start: 200207, end: 201909
  4. ZANTAC [Suspect]
     Active Substance: RANITIDINE HYDROCHLORIDE
     Dosage: 75 MG OVER THE COUNTER
     Route: 065
     Dates: start: 200004, end: 201909
  5. RANITIDINE. [Suspect]
     Active Substance: RANITIDINE
     Dosage: 150 MG, QD
     Route: 065
     Dates: start: 200207, end: 201909
  6. RANITIDINE. [Suspect]
     Active Substance: RANITIDINE
     Dosage: OVER THE COUNTER
     Route: 065
     Dates: start: 200207, end: 201909
  7. RANITIDINE. [Suspect]
     Active Substance: RANITIDINE
     Dosage: 150 MG OVER THE COUNTER
     Route: 065
     Dates: start: 200207, end: 201909
  8. ZANTAC [Suspect]
     Active Substance: RANITIDINE HYDROCHLORIDE
     Dosage: OVER THE COUNTER
     Route: 065
     Dates: start: 200004, end: 201909
  9. ZANTAC [Suspect]
     Active Substance: RANITIDINE HYDROCHLORIDE
     Dosage: 150 MG, QD
     Route: 065
     Dates: start: 200004, end: 201909
  10. ZANTAC [Suspect]
     Active Substance: RANITIDINE HYDROCHLORIDE
     Dosage: UNK, QD
     Route: 065
     Dates: start: 200004, end: 201909

REACTIONS (2)
  - Prostate cancer [Unknown]
  - Skin cancer [Unknown]
